FAERS Safety Report 10043890 (Version 2)
Quarter: 2014Q2

REPORT INFORMATION
  Report Type: Spontaneous
  Country: AR (occurrence: AR)
  Receive Date: 20140328
  Receipt Date: 20140402
  Transmission Date: 20141212
  Serious: Yes (Other)
  Sender: FDA-Public Use
  Company Number: AR-BIOMARINAP-AR-2014-102897

PATIENT
  Age: 19 Year
  Sex: Male

DRUGS (4)
  1. ALDURAZYME [Suspect]
     Indication: MUCOPOLYSACCHARIDOSIS I
     Dosage: 3500 IU, QW
     Route: 042
     Dates: start: 2006
  2. DIPHENHYDRAMINE [Concomitant]
     Indication: PREMEDICATION
  3. METAMIZOLE [Concomitant]
     Indication: PREMEDICATION
  4. PHENOBARBITAL [Concomitant]
     Indication: EPILEPSY

REACTIONS (1)
  - Convulsion [Recovered/Resolved]
